FAERS Safety Report 4464842-9 (Version None)
Quarter: 2004Q4

REPORT INFORMATION
  Report Type: 
  Country: None (occurrence: None)
  Receive Date: 20041004
  Receipt Date: 20031110
  Transmission Date: 20050328
  Serious: Yes (Other)
  Sender: FDA-Public Use
  Company Number: US-GLAXOSMITHKLINE-A0439064A

PATIENT
  Age: 40 Year
  Sex: Male

DRUGS (1)
  1. COREG [Suspect]
     Route: 048
     Dates: start: 20030901

REACTIONS (2)
  - ANGINA PECTORIS [None]
  - PALPITATIONS [None]
